FAERS Safety Report 4853610-1 (Version None)
Quarter: 2005Q4

REPORT INFORMATION
  Report Type: 
  Country: None (occurrence: None)
  Receive Date: 20051212
  Receipt Date: 20051130
  Transmission Date: 20060501
  Serious: Yes (Hospitalization)
  Sender: FDA-Public Use
  Company Number: 2005146727

PATIENT
  Age: 13 Year
  Sex: Male
  Weight: 44.6 kg

DRUGS (10)
  1. VIAGRA [Suspect]
     Indication: PULMONARY HYPERTENSION
     Dosage: 60 MG (20 MG, 3 IN 1 D); ORAL
     Route: 048
     Dates: start: 20040201
  2. LASIX [Concomitant]
  3. DIGOXIN [Concomitant]
  4. CILAZAPRIL [Concomitant]
  5. WARFARIN [Concomitant]
  6. PROCYLIN (BERAPROST SODIUM) [Concomitant]
  7. CLARITHROMYCIN [Concomitant]
  8. MUCOSOLVAN (AMBROXOL HYDROCHLORIDE) [Concomitant]
  9. MUCODYNE (CARBOCISTEINE) [Concomitant]
  10. POLARAMINE [Concomitant]

REACTIONS (12)
  - AMNESIA [None]
  - CHEST PAIN [None]
  - COUGH [None]
  - DISORIENTATION [None]
  - HEART RATE INCREASED [None]
  - NOCTIPHOBIA [None]
  - PALLOR [None]
  - PHARYNGOLARYNGEAL PAIN [None]
  - PYREXIA [None]
  - SLEEP TERROR [None]
  - TREATMENT NONCOMPLIANCE [None]
  - UNRESPONSIVE TO VERBAL STIMULI [None]
